FAERS Safety Report 17474757 (Version 2)
Quarter: 2022Q2

REPORT INFORMATION
  Report Type: Report from Study
  Country: GB (occurrence: GB)
  Receive Date: 20200228
  Receipt Date: 20220422
  Transmission Date: 20220721
  Serious: Yes (Hospitalization)
  Sender: FDA-Public Use
  Company Number: GB-JNJFOC-20190811325

PATIENT
  Age: 81 Year
  Sex: Female
  Weight: 68.8 kg

DRUGS (16)
  1. STELARA [Suspect]
     Active Substance: USTEKINUMAB
     Indication: Psoriasis
     Route: 058
     Dates: start: 20120719
  2. ATORVASTATIN [Concomitant]
     Active Substance: ATORVASTATIN
     Dates: start: 20130501
  3. ALBUTEROL [Concomitant]
     Active Substance: ALBUTEROL
     Dates: start: 20130501
  4. ADCAL                              /00056901/ [Concomitant]
     Dates: start: 20130501
  5. NITROFURANTOIN [Concomitant]
     Active Substance: NITROFURANTOIN
     Dates: start: 20130501
  6. COCODAMOL [Concomitant]
     Active Substance: ACETAMINOPHEN\CODEINE PHOSPHATE
     Dates: start: 20130501
  7. ATROVENT [Concomitant]
     Active Substance: IPRATROPIUM BROMIDE
     Dates: start: 20140203
  8. CYANOCOBALAMIN [Concomitant]
     Active Substance: CYANOCOBALAMIN
     Dates: start: 20140203
  9. TRAMADOL [Concomitant]
     Active Substance: TRAMADOL
     Dates: start: 20140601
  10. CEPHALEXIN                         /00145501/ [Concomitant]
     Dates: start: 20140603
  11. MIRABEGRON [Concomitant]
     Active Substance: MIRABEGRON
     Dates: start: 20150810
  12. ACETAMINOPHEN\CODEINE PHOSPHATE [Concomitant]
     Active Substance: ACETAMINOPHEN\CODEINE PHOSPHATE
     Dates: start: 20170901
  13. CIPROFLOXACIN [Concomitant]
     Active Substance: CIPROFLOXACIN
     Dates: start: 20180703
  14. VENTOLIN [Concomitant]
     Active Substance: ALBUTEROL SULFATE
     Dates: start: 20180703
  15. TERBUTALINE [Concomitant]
     Active Substance: TERBUTALINE
     Dates: start: 20180703
  16. VAGIFEM [Concomitant]
     Active Substance: ESTRADIOL
     Dates: start: 20190305

REACTIONS (1)
  - Large intestine infection [Recovered/Resolved]

NARRATIVE: CASE EVENT DATE: 20190312
